FAERS Safety Report 5905858-2 (Version None)
Quarter: 2008Q4

REPORT INFORMATION
  Report Type: 
  Country: None (occurrence: None)
  Receive Date: 20081001
  Receipt Date: 20081001
  Transmission Date: 20090506
  Serious: Yes (Hospitalization)
  Sender: FDA-Public Use
  Company Number: None

PATIENT
  Age: 30 Year
  Sex: Female
  Weight: 68.0396 kg

DRUGS (2)
  1. MIRENA [Suspect]
     Indication: ENDOMETRIOSIS
     Dates: start: 20080911, end: 20080923
  2. MIRENA [Suspect]
     Indication: MENORRHAGIA
     Dates: start: 20080911, end: 20080923

REACTIONS (4)
  - PELVIC PAIN [None]
  - PURULENCE [None]
  - PYREXIA [None]
  - VAGINAL DISCHARGE [None]
